FAERS Safety Report 16016402 (Version 1)
Quarter: 2019Q1

REPORT INFORMATION
  Report Type: Spontaneous
  Country: US (occurrence: US)
  Receive Date: 20190228
  Receipt Date: 20190228
  Transmission Date: 20190418
  Serious: No
  Sender: FDA-Public Use
  Company Number: None

PATIENT
  Age: 37 Year
  Sex: Male
  Weight: 85.5 kg

DRUGS (1)
  1. SUMATRIPTAN SUCCINATE TABLETS [Suspect]
     Active Substance: SUMATRIPTAN SUCCINATE
     Indication: MIGRAINE
     Dosage: ?          QUANTITY:12 TABLET(S);?
     Route: 048
     Dates: start: 20130210

REACTIONS (2)
  - Drug ineffective [None]
  - Product formulation issue [None]

NARRATIVE: CASE EVENT DATE: 20140101
